FAERS Safety Report 7313507-4 (Version None)
Quarter: 2011Q1

REPORT INFORMATION
  Report Type: 
  Country: None (occurrence: None)
  Receive Date: 20110225
  Receipt Date: 20110221
  Transmission Date: 20110831
  Serious: Yes (Death, Life-Threatening, Hospitalization, Other)
  Sender: FDA-Public Use
  Company Number: US-B.I. PHARMACEUTICALS,INC./RIDGEFIELD-2011-BP-01208BP

PATIENT
  Age: 84 Year
  Sex: Female
  Weight: 72.57 kg

DRUGS (6)
  1. AMIODARONE [Concomitant]
     Dates: start: 20110107, end: 20110110
  2. INSULIN [Concomitant]
     Indication: TYPE 1 DIABETES MELLITUS
  3. SYNTHROID [Concomitant]
  4. DILTIAZEM [Concomitant]
  5. SIMVASTATIN [Concomitant]
  6. PRADAXA [Suspect]
     Indication: ATRIAL FIBRILLATION
     Dosage: 300 MG
     Route: 048
     Dates: start: 20110107, end: 20110110

REACTIONS (7)
  - NAUSEA [None]
  - DEATH [None]
  - CARDIAC ARREST [None]
  - HEPATIC FAILURE [None]
  - LOWER GASTROINTESTINAL HAEMORRHAGE [None]
  - VOMITING [None]
  - RENAL FAILURE ACUTE [None]
